FAERS Safety Report 4745297-3 (Version None)
Quarter: 2005Q3

REPORT INFORMATION
  Report Type: 
  Country: None (occurrence: None)
  Receive Date: 20050812
  Receipt Date: 20050802
  Transmission Date: 20060218
  Serious: Yes (Other)
  Sender: FDA-Public Use
  Company Number: 2005103440

PATIENT
  Sex: Male

DRUGS (3)
  1. CYCLOKAPRON             (TRANEXAMIC ACID) [Suspect]
     Indication: URETHRAL HAEMORRHAGE
     Dosage: 3 GRAM (1 GRAM, 3 IN 1 D), INTRAVENOUS
     Route: 042
  2. ACE INHIBITOR NOS (ACE INHIBITOR NOS) [Concomitant]
  3. CIPROFLOXACIN HCL [Concomitant]

REACTIONS (1)
  - TRANSURETHRAL PROSTATECTOMY [None]
